FAERS Safety Report 4852355-1 (Version None)
Quarter: 2005Q4

REPORT INFORMATION
  Report Type: 
  Country: None (occurrence: None)
  Receive Date: 20051209
  Receipt Date: 20051128
  Transmission Date: 20060501
  Serious: Yes (Hospitalization)
  Sender: FDA-Public Use
  Company Number: 2005121668

PATIENT
  Age: 21 Year
  Sex: 0
  Weight: 64 kg

DRUGS (5)
  1. AZULFIDINE EN-TABS [Suspect]
     Indication: RHEUMATOID ARTHRITIS
     Dosage: 1000 MG (500 MG, 2 IN 1 D); ORAL
     Route: 048
     Dates: start: 20020617, end: 20020627
  2. LOXONIN (LOXOPROFEN SODIUM) [Suspect]
     Indication: RHEUMATOID ARTHRITIS
     Dosage: ORAL
     Route: 048
     Dates: end: 20020627
  3. METHYLPREDNISOLONE [Concomitant]
  4. ETODOLAC [Concomitant]
  5. MUCOSTA (REBAMIPIDE) [Concomitant]

REACTIONS (7)
  - DRUG ERUPTION [None]
  - JUVENILE ARTHRITIS [None]
  - LYMPHADENOPATHY [None]
  - PAIN [None]
  - PIGMENTATION DISORDER [None]
  - RASH MACULO-PAPULAR [None]
  - WHITE BLOOD CELL COUNT INCREASED [None]
